FAERS Safety Report 14565209 (Version 1)
Quarter: 2018Q1

REPORT INFORMATION
  Report Type: Spontaneous
  Country: PL (occurrence: PL)
  Receive Date: 20180223
  Receipt Date: 20180223
  Transmission Date: 20180509
  Serious: Yes (Life-Threatening)
  Sender: FDA-Public Use
  Company Number: PL-AUROBINDO-AUR-APL-2018-009180

PATIENT
  Age: 59 Year
  Sex: Female

DRUGS (4)
  1. DALBAVANCIN. [Concomitant]
     Active Substance: DALBAVANCIN
     Indication: FASCIITIS
     Route: 065
  2. CLINDAMYCIN. [Concomitant]
     Active Substance: CLINDAMYCIN
     Indication: FASCIITIS
     Route: 065
  3. MEROPENEM. [Concomitant]
     Active Substance: MEROPENEM
     Indication: FASCIITIS
     Route: 065
  4. LINEZOLID. [Suspect]
     Active Substance: LINEZOLID
     Indication: FASCIITIS
     Route: 065

REACTIONS (3)
  - Streptococcal infection [Recovered/Resolved with Sequelae]
  - Clostridium difficile colitis [Recovered/Resolved]
  - Drug ineffective [Recovered/Resolved with Sequelae]
